FAERS Safety Report 20597001 (Version 2)
Quarter: 2022Q1

REPORT INFORMATION
  Report Type: Report from Study
  Country: MX (occurrence: MX)
  Receive Date: 20220315
  Receipt Date: 20220328
  Transmission Date: 20220423
  Serious: No
  Sender: FDA-Public Use
  Company Number: MX-NOVARTISPH-NVSC2022MX059676

PATIENT
  Sex: Female
  Weight: 68 kg

DRUGS (1)
  1. EXFORGE [Suspect]
     Active Substance: AMLODIPINE BESYLATE\VALSARTAN
     Indication: Hypertension
     Dosage: 0.5 DOSAGE FORM, BID (320/10 MG, STARTED 5 YEARS AGO))
     Route: 048

REACTIONS (2)
  - Inappropriate schedule of product administration [Unknown]
  - Wrong technique in product usage process [Unknown]
